FAERS Safety Report 22537361 (Version 1)
Quarter: 2023Q2

REPORT INFORMATION
  Report Type: Spontaneous
  Country: US (occurrence: None)
  Receive Date: 20230607
  Receipt Date: 20230607
  Transmission Date: 20230722
  Serious: Yes (Life-Threatening, Hospitalization)
  Sender: FDA-Public Use
  Company Number: None

PATIENT
  Age: 7 Year
  Sex: Female
  Weight: 28.1 kg

DRUGS (2)
  1. ARTESUNATE [Suspect]
     Active Substance: ARTESUNATE
     Indication: Malaria
     Dates: start: 20230527, end: 20230528
  2. MALARONE [Concomitant]
     Active Substance: ATOVAQUONE\PROGUANIL HYDROCHLORIDE
     Dates: start: 20230528, end: 20230531

REACTIONS (1)
  - Haemolytic anaemia [None]

NARRATIVE: CASE EVENT DATE: 20230606
